FAERS Safety Report 7089570-5 (Version None)
Quarter: 2010Q4

REPORT INFORMATION
  Report Type: 
  Country: None (occurrence: None)
  Receive Date: 20101108
  Receipt Date: 20101014
  Transmission Date: 20110411
  Serious: Yes (Hospitalization)
  Sender: FDA-Public Use
  Company Number: US-BAYER-201033807NA

PATIENT
  Age: 35 Year
  Sex: Female

DRUGS (7)
  1. YAZ [Suspect]
     Indication: CONTRACEPTION
     Route: 048
     Dates: start: 20060101, end: 20070101
  2. YASMIN [Suspect]
     Indication: PRODUCT USED FOR UNKNOWN INDICATION
     Route: 048
  3. OCELLA [Suspect]
     Indication: PRODUCT USED FOR UNKNOWN INDICATION
     Route: 048
  4. MIGRAINES MEDICATION NOS [Concomitant]
     Indication: MIGRAINE
  5. NSAIDS NOS [Concomitant]
  6. COCAINE [Concomitant]
     Dosage: USE DURING THE 20 DAYS BEFORE THE ONSET OF INJURIES (PER PFS)
  7. MARIJUANA [Concomitant]
     Dosage: USE DURING THE 20 DAYS BEFORE THE ONSET OF INJURIES (PER PFS)

REACTIONS (1)
  - CEREBROVASCULAR ACCIDENT [None]
